FAERS Safety Report 23581679 (Version 1)
Quarter: 2024Q1

REPORT INFORMATION
  Report Type: Spontaneous
  Country: FR (occurrence: FR)
  Receive Date: 20240229
  Receipt Date: 20240229
  Transmission Date: 20240410
  Serious: Yes (Hospitalization)
  Sender: FDA-Public Use
  Company Number: None

PATIENT
  Age: 85 Year
  Sex: Male

DRUGS (2)
  1. PIPERACILLIN SODIUM\TAZOBACTAM SODIUM [Suspect]
     Active Substance: PIPERACILLIN SODIUM\TAZOBACTAM SODIUM
     Indication: Pneumonia
     Dosage: 12 G, 1X/DAY
     Route: 042
     Dates: start: 20240201, end: 20240204
  2. LINEZOLID [Suspect]
     Active Substance: LINEZOLID
     Indication: Skin bacterial infection
     Dosage: UNK
     Route: 042
     Dates: start: 20240203, end: 20240204

REACTIONS (2)
  - Toxic skin eruption [Recovering/Resolving]
  - Off label use [Unknown]

NARRATIVE: CASE EVENT DATE: 20240201
